FAERS Safety Report 23291536 (Version 1)
Quarter: 2023Q4

REPORT INFORMATION
  Report Type: Spontaneous
  Country: FR (occurrence: FR)
  Receive Date: 20231213
  Receipt Date: 20231213
  Transmission Date: 20240110
  Serious: Yes (Hospitalization)
  Sender: FDA-Public Use
  Company Number: None

PATIENT
  Age: 69 Year
  Sex: Female
  Weight: 57 kg

DRUGS (12)
  1. CARBOPLATIN [Suspect]
     Active Substance: CARBOPLATIN
     Indication: Lung adenocarcinoma stage II
     Dates: start: 20230222, end: 20230222
  2. PEMETREXED [Suspect]
     Active Substance: PEMETREXED
     Indication: Lung adenocarcinoma stage II
     Dates: start: 20230201, end: 20230201
  3. EZETIMIBE [Concomitant]
     Active Substance: EZETIMIBE
  4. KARDEGIC [Concomitant]
     Active Substance: ASPIRIN DL-LYSINE
  5. CLOPIDOGREL [Concomitant]
     Active Substance: CLOPIDOGREL BISULFATE
     Dates: end: 20230304
  6. SITAGLIPTIN [Concomitant]
     Active Substance: SITAGLIPTIN
  7. ROSUVASTATIN [Concomitant]
     Active Substance: ROSUVASTATIN
  8. LANSOPRAZOLE [Concomitant]
     Active Substance: LANSOPRAZOLE
  9. PEMETREXED [Suspect]
     Active Substance: PEMETREXED
     Indication: Lung adenocarcinoma stage II
     Dates: start: 20230222, end: 20230222
  10. PEMETREXED [Suspect]
     Active Substance: PEMETREXED
     Indication: Lung adenocarcinoma stage II
     Dates: start: 20230111, end: 20230111
  11. CARBOPLATIN [Suspect]
     Active Substance: CARBOPLATIN
     Indication: Lung adenocarcinoma stage II
     Dates: start: 20230111, end: 20230111
  12. CARBOPLATIN [Suspect]
     Active Substance: CARBOPLATIN
     Indication: Lung adenocarcinoma stage II
     Dates: start: 20230201, end: 20230201

REACTIONS (1)
  - Pancytopenia [Recovered/Resolved]

NARRATIVE: CASE EVENT DATE: 20230213
